FAERS Safety Report 20006868 (Version 1)
Quarter: 2021Q4

REPORT INFORMATION
  Report Type: Spontaneous
  Country: US (occurrence: US)
  Receive Date: 20211028
  Receipt Date: 20211028
  Transmission Date: 20220303
  Serious: Yes (Other)
  Sender: FDA-Public Use
  Company Number: US-PFIZER INC-202101440057

PATIENT

DRUGS (3)
  1. ENCORAFENIB [Suspect]
     Active Substance: ENCORAFENIB
     Indication: Neoplasm malignant
     Dosage: UNK
  2. BINIMETINIB [Suspect]
     Active Substance: BINIMETINIB
     Indication: Neoplasm malignant
     Dosage: UNK
  3. CETUXIMAB [Suspect]
     Active Substance: CETUXIMAB
     Indication: Neoplasm malignant
     Dosage: UNK

REACTIONS (1)
  - Neutropenia [Unknown]
